FAERS Safety Report 11087467 (Version 7)
Quarter: 2015Q3

REPORT INFORMATION
  Report Type: Spontaneous
  Country: CA (occurrence: US)
  Receive Date: 20150504
  Receipt Date: 20150727
  Transmission Date: 20151125
  Serious: Yes (Death, Hospitalization)
  Sender: FDA-Public Use
  Company Number: CA-CELGENE-CAN-2015014876

PATIENT
  Age: 72 Year
  Sex: Male
  Weight: 72 kg

DRUGS (57)
  1. TYLENOL [Concomitant]
     Active Substance: ACETAMINOPHEN
     Indication: ADVERSE EVENT
     Route: 065
     Dates: start: 20120713, end: 20120713
  2. ASA [Concomitant]
     Active Substance: ASPIRIN
     Indication: PRODUCT USED FOR UNKNOWN INDICATION
     Route: 065
     Dates: start: 20120706
  3. PREDNISONE. [Concomitant]
     Active Substance: PREDNISONE
     Indication: ADVERSE EVENT
     Route: 065
     Dates: start: 20120713, end: 20120713
  4. SOLU-MEDROL [Concomitant]
     Active Substance: METHYLPREDNISOLONE SODIUM SUCCINATE
     Indication: ADVERSE EVENT
     Route: 065
     Dates: start: 20120714, end: 20120716
  5. MOXIFLOXACIN. [Concomitant]
     Active Substance: MOXIFLOXACIN
     Indication: ADVERSE EVENT
     Route: 065
     Dates: start: 20130321, end: 20130327
  6. FRAGMIN [Concomitant]
     Active Substance: DALTEPARIN SODIUM
     Route: 065
     Dates: start: 20120930
  7. ATIVAN [Concomitant]
     Active Substance: LORAZEPAM
     Route: 065
     Dates: start: 20120723, end: 20120725
  8. NORMAL SALINE [Concomitant]
     Active Substance: SODIUM CHLORIDE
     Indication: ADVERSE EVENT
     Route: 041
     Dates: start: 20120713, end: 20120714
  9. NORMAL SALINE [Concomitant]
     Active Substance: SODIUM CHLORIDE
     Route: 040
     Dates: start: 20120929, end: 20121005
  10. DEXAMETHASONE. [Suspect]
     Active Substance: DEXAMETHASONE
     Route: 041
     Dates: start: 20120706, end: 20141219
  11. ENOXAPARIN [Concomitant]
     Active Substance: ENOXAPARIN
     Indication: ADVERSE EVENT
     Route: 065
     Dates: start: 20131230
  12. PHOSPHORUS BOLUS [Concomitant]
     Indication: ADVERSE EVENT
     Route: 065
     Dates: start: 20120716, end: 20120716
  13. FUCITHALMIC [Concomitant]
     Active Substance: FUSIDIC ACID
     Indication: ADVERSE EVENT
     Route: 065
     Dates: start: 20120801
  14. FRAGMIN [Concomitant]
     Active Substance: DALTEPARIN SODIUM
     Route: 065
     Dates: start: 20121031
  15. ACETAMINOPHEN. [Concomitant]
     Active Substance: ACETAMINOPHEN
     Indication: ADVERSE EVENT
     Route: 065
     Dates: start: 20120722, end: 20120723
  16. MEROPENEM. [Concomitant]
     Active Substance: MEROPENEM
     Route: 065
     Dates: start: 20121101
  17. G-CSF [Concomitant]
     Active Substance: GRANULOCYTE COLONY-STIMULATING FACTOR NOS
     Indication: ADVERSE EVENT
     Route: 065
     Dates: start: 20120814
  18. ATIVAN [Concomitant]
     Active Substance: LORAZEPAM
     Indication: PRODUCT USED FOR UNKNOWN INDICATION
     Route: 065
     Dates: start: 20120719, end: 20120722
  19. MAXERAN [Concomitant]
     Active Substance: METOCLOPRAMIDE HYDROCHLORIDE
     Indication: ADVERSE EVENT
     Route: 065
     Dates: start: 20120802
  20. DEXAMETHASONE. [Suspect]
     Active Substance: DEXAMETHASONE
     Indication: PLASMA CELL MYELOMA
     Dosage: 825 MILLIGRAM
     Route: 048
     Dates: start: 20120706, end: 20141226
  21. TYLENOL [Concomitant]
     Active Substance: ACETAMINOPHEN
     Route: 065
     Dates: start: 20130122
  22. MOXIFLOXACIN. [Concomitant]
     Active Substance: MOXIFLOXACIN
     Route: 065
     Dates: start: 20130402, end: 20130408
  23. MOXIFLOXACIN. [Concomitant]
     Active Substance: MOXIFLOXACIN
     Route: 065
     Dates: start: 20131008, end: 20131018
  24. CEFIXIME. [Concomitant]
     Active Substance: CEFIXIME
     Indication: ADVERSE EVENT
     Route: 065
     Dates: start: 20130806, end: 20130816
  25. SENOKOT [Concomitant]
     Active Substance: SENNOSIDES
     Indication: ADVERSE EVENT
     Route: 065
     Dates: start: 20130907, end: 201310
  26. PIPERACILLIN [Concomitant]
     Active Substance: PIPERACILLIN
     Indication: ADVERSE EVENT
     Route: 065
     Dates: start: 20120713, end: 20120724
  27. PIPERACILLIN [Concomitant]
     Active Substance: PIPERACILLIN
     Route: 065
     Dates: start: 20120929, end: 20120930
  28. HEPARIN [Concomitant]
     Active Substance: HEPARIN SODIUM
     Indication: PRODUCT USED FOR UNKNOWN INDICATION
     Route: 065
     Dates: start: 20120716, end: 20120719
  29. MEROPENEM. [Concomitant]
     Active Substance: MEROPENEM
     Route: 065
     Dates: start: 20120929, end: 20120929
  30. AVELOX [Concomitant]
     Active Substance: MOXIFLOXACIN HYDROCHLORIDE
     Indication: PRODUCT USED FOR UNKNOWN INDICATION
     Route: 065
     Dates: start: 20121030, end: 20121112
  31. REVLIMID [Suspect]
     Active Substance: LENALIDOMIDE
     Indication: PLASMA CELL MYELOMA
     Dosage: 10 MILLIGRAM
     Route: 048
     Dates: start: 20120706, end: 20150108
  32. AMOXIL CLAVULIN [Concomitant]
     Route: 065
     Dates: start: 20130428, end: 20130507
  33. KETOROLAC TROMETHAMINE. [Concomitant]
     Active Substance: KETOROLAC TROMETHAMINE
     Indication: ADVERSE EVENT
     Route: 065
     Dates: start: 20120910, end: 20130913
  34. FLU VIRAL VACCINE [Concomitant]
     Route: 065
     Dates: start: 20131023, end: 20131023
  35. NORMAL SALINE [Concomitant]
     Active Substance: SODIUM CHLORIDE
     Route: 065
     Dates: start: 20120724, end: 20120725
  36. POLYETHYLENE GLYCOL 3350. [Concomitant]
     Active Substance: POLYETHYLENE GLYCOL 3350
     Indication: PRODUCT USED FOR UNKNOWN INDICATION
     Route: 065
     Dates: start: 20120831, end: 20121102
  37. STEMETIL [Concomitant]
     Active Substance: PROCHLORPERAZINE MALEATE
     Indication: ADVERSE EVENT
     Route: 065
     Dates: start: 20120830
  38. HALDOL [Concomitant]
     Active Substance: HALOPERIDOL
     Indication: ADVERSE EVENT
     Route: 065
     Dates: start: 20121104, end: 20121104
  39. ELOTUZUMAB [Suspect]
     Active Substance: ELOTUZUMAB
     Indication: PLASMA CELL MYELOMA
     Route: 041
     Dates: start: 20120706, end: 20141219
  40. TYLENOL [Concomitant]
     Active Substance: ACETAMINOPHEN
     Route: 065
     Dates: start: 20120927, end: 20120927
  41. FLU VIRAL VACCINE [Concomitant]
     Indication: PRODUCT USED FOR UNKNOWN INDICATION
     Route: 065
     Dates: start: 201211, end: 201211
  42. ACLAVULANATE [Concomitant]
     Indication: ADVERSE EVENT
     Route: 065
     Dates: start: 20140103, end: 20140113
  43. MGSO4 [Concomitant]
     Active Substance: MAGNESIUM SULFATE
     Indication: ADVERSE EVENT
     Route: 065
     Dates: start: 20120714, end: 20120714
  44. TAZOBACTAM [Concomitant]
     Active Substance: TAZOBACTAM
     Indication: ADVERSE EVENT
     Route: 065
     Dates: start: 20120713, end: 20120724
  45. TAZOBACTAM [Concomitant]
     Active Substance: TAZOBACTAM
     Route: 065
     Dates: start: 20120929, end: 20120930
  46. AMOXICILLIN. [Concomitant]
     Active Substance: AMOXICILLIN
     Indication: ADVERSE EVENT
     Route: 065
     Dates: start: 20121022, end: 20121101
  47. CIPROFLOXACIN. [Concomitant]
     Active Substance: CIPROFLOXACIN
     Indication: ADVERSE EVENT
     Route: 065
     Dates: start: 20121128, end: 20121207
  48. MOXIFLOXACIN. [Concomitant]
     Active Substance: MOXIFLOXACIN
     Route: 065
     Dates: start: 20130918, end: 20130928
  49. AMOXIL CLAVULIN [Concomitant]
     Indication: ADVERSE EVENT
     Route: 065
     Dates: start: 20130307, end: 20130317
  50. G-CSF [Concomitant]
     Active Substance: GRANULOCYTE COLONY-STIMULATING FACTOR NOS
     Route: 065
     Dates: start: 20120831
  51. G-CSF [Concomitant]
     Active Substance: GRANULOCYTE COLONY-STIMULATING FACTOR NOS
     Route: 065
     Dates: start: 20130704
  52. CEFTRIAXONE. [Concomitant]
     Active Substance: CEFTRIAXONE
     Indication: ADVERSE EVENT
     Route: 065
     Dates: start: 20130913, end: 20130918
  53. SENOKOT [Concomitant]
     Active Substance: SENNOSIDES
     Route: 065
     Dates: start: 20121002
  54. FRAGMIN [Concomitant]
     Active Substance: DALTEPARIN SODIUM
     Indication: PRODUCT USED FOR UNKNOWN INDICATION
     Route: 065
     Dates: start: 20120714, end: 20120715
  55. MYCOSTATIN [Concomitant]
     Active Substance: NYSTATIN
     Indication: ADVERSE EVENT
     Route: 065
     Dates: start: 20120720, end: 20120726
  56. MEROPENEM. [Concomitant]
     Active Substance: MEROPENEM
     Indication: ADVERSE EVENT
     Route: 065
     Dates: start: 20120713, end: 20120713
  57. B + O [Concomitant]
     Indication: PRODUCT USED FOR UNKNOWN INDICATION
     Route: 065
     Dates: start: 20120713, end: 20120713

REACTIONS (2)
  - Plasma cell myeloma [Fatal]
  - Pneumonia [Fatal]

NARRATIVE: CASE EVENT DATE: 20150109
